FAERS Safety Report 10908410 (Version 3)
Quarter: 2015Q2

REPORT INFORMATION
  Report Type: Spontaneous
  Country: US (occurrence: US)
  Receive Date: 20150312
  Receipt Date: 20150623
  Transmission Date: 20150821
  Serious: Yes (Hospitalization, Other)
  Sender: FDA-Public Use
  Company Number: US-009507513-1110USA00162

PATIENT
  Sex: Female
  Weight: 68.27 kg

DRUGS (4)
  1. FOSAMAX [Suspect]
     Active Substance: ALENDRONATE SODIUM
     Indication: BONE DENSITY DECREASED
     Dosage: 5 MG, UNK
     Route: 048
     Dates: start: 20001215, end: 20010911
  2. FOSAMAX [Suspect]
     Active Substance: ALENDRONATE SODIUM
     Dosage: 70 MG, QW
     Route: 048
     Dates: start: 20060406
  3. FOSAMAX [Suspect]
     Active Substance: ALENDRONATE SODIUM
     Indication: OSTEOPOROSIS
     Dosage: 70 MG, UNK
     Route: 048
     Dates: start: 20010912, end: 20030109
  4. ALENDRONATE SODIUM. [Suspect]
     Active Substance: ALENDRONATE SODIUM
     Indication: BONE DENSITY DECREASED
     Dosage: 70 MG, UNK
     Route: 048
     Dates: start: 20080411, end: 20091229

REACTIONS (42)
  - Open reduction of fracture [Unknown]
  - Fracture nonunion [Unknown]
  - Open reduction of fracture [Unknown]
  - Bone graft [Unknown]
  - Knee arthroplasty [Unknown]
  - Cardiac disorder [Unknown]
  - Vitamin D decreased [Unknown]
  - Ankle fracture [Unknown]
  - Cardiac murmur [Unknown]
  - Prealbumin decreased [Unknown]
  - Tonsillectomy [Unknown]
  - Device breakage [Unknown]
  - Intramedullary rod insertion [Unknown]
  - Hypoacusis [Unknown]
  - Osteoarthritis [Unknown]
  - Hyperlipidaemia [Unknown]
  - Hysterectomy [Unknown]
  - Incorrect dose administered [Unknown]
  - Hypoxia [Unknown]
  - Arrhythmia supraventricular [Unknown]
  - Macular degeneration [Unknown]
  - Tibia fracture [Unknown]
  - Femur fracture [Unknown]
  - Cystopexy [Unknown]
  - Anxiety [Unknown]
  - Supraventricular tachycardia [Unknown]
  - Lower limb fracture [Unknown]
  - Osteopenia [Unknown]
  - Knee arthroplasty [Unknown]
  - Sinus congestion [Unknown]
  - Device failure [Unknown]
  - Knee arthroplasty [Unknown]
  - Hypokalaemia [Unknown]
  - Anaemia [Unknown]
  - Oophorectomy bilateral [Unknown]
  - Fall [Unknown]
  - Hyponatraemia [Unknown]
  - Cough [Recovered/Resolved]
  - Nausea [Unknown]
  - Fracture nonunion [Unknown]
  - Urinary tract infection [Unknown]
  - Hypertension [Unknown]

NARRATIVE: CASE EVENT DATE: 2002
